FAERS Safety Report 14376262 (Version 3)
Quarter: 2019Q2

REPORT INFORMATION
  Report Type: Report from Study
  Country: US (occurrence: US)
  Receive Date: 20180111
  Receipt Date: 20190516
  Transmission Date: 20190711
  Serious: Yes (Hospitalization)
  Sender: FDA-Public Use
  Company Number: US-EXELIXIS-XL18418011920

PATIENT
  Age: 63 Year
  Sex: Male
  Weight: 112.7 kg

DRUGS (12)
  1. ACYCLOVIR. [Concomitant]
     Active Substance: ACYCLOVIR
  2. EFAVIRENZ W/EMTRICITABINE/TENOFOVIR [Concomitant]
  3. ARIPIPRAZOLE. [Concomitant]
     Active Substance: ARIPIPRAZOLE
  4. HYDROCHLOROTHIAZIDE. [Concomitant]
     Active Substance: HYDROCHLOROTHIAZIDE
  5. MULTIVITAMINS [Concomitant]
     Active Substance: VITAMINS
  6. LISINOPRIL. [Concomitant]
     Active Substance: LISINOPRIL
  7. RANITIDINE. [Concomitant]
     Active Substance: RANITIDINE
  8. XL184 [Suspect]
     Active Substance: CABOZANTINIB
     Indication: KAPOSI^S SARCOMA
     Dosage: 60 MG, QD
     Route: 048
     Dates: start: 20140121
  9. CITALOPRAM [Concomitant]
     Active Substance: CITALOPRAM HYDROBROMIDE
  10. ASPIRIN. [Concomitant]
     Active Substance: ASPIRIN
  11. CALCIUM + VITAMIN D [Concomitant]
     Active Substance: CALCIUM\VITAMIN D
  12. LORAZEPAM. [Concomitant]
     Active Substance: LORAZEPAM

REACTIONS (1)
  - Cerebrovascular accident [Recovered/Resolved]

NARRATIVE: CASE EVENT DATE: 20160216
